FAERS Safety Report 8966535 (Version 1)
Quarter: 2012Q4

REPORT INFORMATION
  Report Type: 
  Country: US (occurrence: US)
  Receive Date: 20121217
  Receipt Date: 20121217
  Transmission Date: 20130627
  Serious: No
  Sender: FDA-Public Use
  Company Number: US-PFIZER INC-2012318306

PATIENT
  Age: 49 Year
  Sex: Male

DRUGS (2)
  1. OXYCODONE HYDROCHLORIDE [Suspect]
     Dosage: 6 tablets of 30 mg daily
  2. OXYCONTIN [Suspect]
     Dosage: 2 tablets of 80 mg daily

REACTIONS (1)
  - Malaise [Recovered/Resolved]
